FAERS Safety Report 13452552 (Version 2)
Quarter: 2018Q2

REPORT INFORMATION
  Report Type: Spontaneous
  Country: US (occurrence: US)
  Receive Date: 20170418
  Receipt Date: 20180420
  Transmission Date: 20180711
  Serious: Yes (Death, Hospitalization, Other)
  Sender: FDA-Public Use
  Company Number: US-TEVA-745535USA

PATIENT
  Age: 81 Year
  Sex: Male
  Weight: 77 kg

DRUGS (12)
  1. SOTALOL. [Concomitant]
     Active Substance: SOTALOL
     Route: 065
     Dates: start: 2016
  2. FIRMAGON [Concomitant]
     Active Substance: DEGARELIX ACETATE
     Route: 065
     Dates: start: 20160401
  3. FOLIC ACID. [Concomitant]
     Active Substance: FOLIC ACID
     Route: 065
     Dates: start: 2016
  4. WARFARIN [Suspect]
     Active Substance: WARFARIN
     Indication: HYPERTENSION
     Route: 048
     Dates: start: 2016, end: 20160518
  5. ENZALUTAMIDE [Concomitant]
     Active Substance: ENZALUTAMIDE
     Indication: HORMONE-REFRACTORY PROSTATE CANCER
     Dosage: 160 MILLIGRAM DAILY;
     Route: 048
     Dates: start: 201604, end: 20160715
  6. BIAXIN [Concomitant]
     Active Substance: CLARITHROMYCIN
     Route: 065
     Dates: start: 2016
  7. AZELASTINE. [Concomitant]
     Active Substance: AZELASTINE HYDROCHLORIDE
     Route: 065
     Dates: start: 2016
  8. LEVOTHYROXINE. [Concomitant]
     Active Substance: LEVOTHYROXINE
     Route: 065
     Dates: start: 2016
  9. ALPRAZOLAM. [Concomitant]
     Active Substance: ALPRAZOLAM
     Route: 065
     Dates: start: 2016
  10. LEUPROLIDE [Concomitant]
     Active Substance: LEUPROLIDE
     Route: 065
     Dates: start: 200602
  11. NAPROXEN. [Concomitant]
     Active Substance: NAPROXEN
     Route: 065
     Dates: start: 2016, end: 2016
  12. XGEVA [Concomitant]
     Active Substance: DENOSUMAB
     Route: 065
     Dates: start: 20160401

REACTIONS (1)
  - Rectal haemorrhage [Recovered/Resolved with Sequelae]

NARRATIVE: CASE EVENT DATE: 20160515
